FAERS Safety Report 8948630 (Version 1)
Quarter: 2012Q4

REPORT INFORMATION
  Report Type: 
  Country: FR (occurrence: FR)
  Receive Date: 20121206
  Receipt Date: 20121206
  Transmission Date: 20130627
  Serious: Yes (Other)
  Sender: FDA-Public Use
  Company Number: PHHY2012FR110151

PATIENT
  Age: 81 Year
  Sex: Female

DRUGS (1)
  1. GLIVEC [Suspect]
     Indication: CHRONIC MYELOID LEUKAEMIA
     Dosage: 300 mg, daily (100 mg morning + 200 mg evening)
     Route: 048
     Dates: start: 201010

REACTIONS (4)
  - Lung adenocarcinoma [Not Recovered/Not Resolved]
  - Second primary malignancy [Not Recovered/Not Resolved]
  - Metastases to bone [Not Recovered/Not Resolved]
  - Sciatica [Unknown]
